FAERS Safety Report 12535950 (Version 1)
Quarter: 2016Q3

REPORT INFORMATION
  Report Type: Spontaneous
  Country: None (occurrence: None)
  Receive Date: 20160706
  Receipt Date: 20160706
  Transmission Date: 20161109
  Serious: No
  Sender: FDA-Public Use
  Company Number: None

PATIENT
  Sex: Male

DRUGS (1)
  1. SERTRALINE, 25MG AMERICAN HEALTH PACKAGING [Suspect]
     Active Substance: SERTRALINE HYDROCHLORIDE
     Route: 048
     Dates: start: 20160705, end: 20160705

REACTIONS (2)
  - Hypoaesthesia oral [None]
  - Tongue discomfort [None]

NARRATIVE: CASE EVENT DATE: 20160705
